FAERS Safety Report 13234172 (Version 1)
Quarter: 2017Q1

REPORT INFORMATION
  Report Type: Spontaneous
  Country: US (occurrence: US)
  Receive Date: 20170215
  Receipt Date: 20170215
  Transmission Date: 20170428
  Serious: Yes (Hospitalization)
  Sender: FDA-Public Use
  Company Number: None

PATIENT
  Age: 61 Year
  Sex: Male

DRUGS (2)
  1. REMICADE [Suspect]
     Active Substance: INFLIXIMAB
  2. PREDNISONE 10 MG [Suspect]
     Active Substance: PREDNISONE

REACTIONS (5)
  - Blood electrolytes abnormal [None]
  - Hypoalbuminaemia [None]
  - Colitis ulcerative [None]
  - Clostridium difficile infection [None]
  - Condition aggravated [None]

NARRATIVE: CASE EVENT DATE: 20150102
